FAERS Safety Report 9682513 (Version 2)
Quarter: 2013Q4

REPORT INFORMATION
  Report Type: Spontaneous
  Country: IT (occurrence: IT)
  Receive Date: 20131112
  Receipt Date: 20131118
  Transmission Date: 20140711
  Serious: Yes (Life-Threatening, Other)
  Sender: FDA-Public Use
  Company Number: IT-JNJFOC-20131102776

PATIENT
  Sex: Female

DRUGS (2)
  1. DOXORUBICIN HYDROCHLORIDE (CAELYX) [Suspect]
     Indication: BREAST CANCER METASTATIC
     Route: 042
  2. DEXAMETHASONE [Concomitant]
     Indication: PREMEDICATION
     Route: 065

REACTIONS (12)
  - Anaemia [Unknown]
  - Palmar-plantar erythrodysaesthesia syndrome [Unknown]
  - Mucosal inflammation [Unknown]
  - Infection [Unknown]
  - Embolism [Unknown]
  - Breast cancer metastatic [Unknown]
  - Neutropenia [Unknown]
  - Thrombocytopenia [Unknown]
  - Nausea [Unknown]
  - Vomiting [Unknown]
  - Asthenia [Unknown]
  - Alopecia [Unknown]
